FAERS Safety Report 5780568-3 (Version None)
Quarter: 2008Q2

REPORT INFORMATION
  Report Type: 
  Country: None (occurrence: None)
  Receive Date: 20080620
  Receipt Date: 20080610
  Transmission Date: 20081010
  Serious: Yes (Hospitalization)
  Sender: FDA-Public Use
  Company Number: US-BAYER-200812415BCC

PATIENT
  Age: 84 Year
  Sex: Male

DRUGS (8)
  1. ASPIRIN [Suspect]
     Indication: DRUG USE FOR UNKNOWN INDICATION
     Route: 048
     Dates: end: 20080101
  2. BONIVA [Suspect]
     Indication: OSTEOPOROSIS
     Route: 042
     Dates: start: 20080501
  3. BONIVA [Suspect]
     Dosage: UNIT DOSE: 150 MG
     Route: 048
     Dates: start: 20070101, end: 20080101
  4. METOPROLOL [Concomitant]
  5. CALCIUM NOS [Concomitant]
  6. LASIX [Concomitant]
  7. ACTOS [Concomitant]
  8. COZAAR [Concomitant]

REACTIONS (3)
  - BLOOD COUNT ABNORMAL [None]
  - FEELING ABNORMAL [None]
  - RECTAL HAEMORRHAGE [None]
